FAERS Safety Report 17437026 (Version 3)
Quarter: 2020Q1

REPORT INFORMATION
  Report Type: Report from Study
  Country: CA (occurrence: CA)
  Receive Date: 20200219
  Receipt Date: 20200311
  Transmission Date: 20200409
  Serious: Yes (Other)
  Sender: FDA-Public Use
  Company Number: CA-BAUSCH-BL-2020-005127

PATIENT
  Age: 33 Year
  Sex: Male

DRUGS (2)
  1. SILIQ [Suspect]
     Active Substance: BRODALUMAB
     Indication: PSORIASIS
     Dosage: 210MG/ 1.5 ML, WEEKLY
     Route: 058
     Dates: start: 20200212
  2. ULTRAVATE [Concomitant]
     Active Substance: HALOBETASOL PROPIONATE
     Indication: PSORIASIS

REACTIONS (12)
  - Malaise [Unknown]
  - Groin pain [Unknown]
  - Loss of consciousness [Unknown]
  - Mobility decreased [Not Recovered/Not Resolved]
  - Muscle spasms [Not Recovered/Not Resolved]
  - Symptom recurrence [Not Recovered/Not Resolved]
  - Fall [Unknown]
  - Lip swelling [Unknown]
  - Pain [Not Recovered/Not Resolved]
  - Muscle strain [Unknown]
  - Psoriasis [Not Recovered/Not Resolved]
  - Headache [Unknown]

NARRATIVE: CASE EVENT DATE: 2020
